FAERS Safety Report 6427451-8 (Version None)
Quarter: 2009Q4

REPORT INFORMATION
  Report Type: 
  Country: None (occurrence: None)
  Receive Date: 20091104
  Receipt Date: 20091021
  Transmission Date: 20100525
  Serious: Yes (Other)
  Sender: FDA-Public Use
  Company Number: NZ-MYLANLABS-2009S1018374

PATIENT
  Sex: Female

DRUGS (1)
  1. LORA-TABS [Suspect]
     Indication: RHINITIS ALLERGIC
     Route: 048
     Dates: start: 20091020, end: 20091020

REACTIONS (2)
  - SWELLING FACE [None]
  - URTICARIA [None]
